FAERS Safety Report 10195264 (Version 1)
Quarter: 2014Q2

REPORT INFORMATION
  Report Type: Spontaneous
  Country: JP (occurrence: JP)
  Receive Date: 20140526
  Receipt Date: 20140526
  Transmission Date: 20141212
  Serious: Yes (Hospitalization)
  Sender: FDA-Public Use
  Company Number: JP-BRISTOL-MYERS SQUIBB COMPANY-20797528

PATIENT
  Age: 70 Year
  Sex: Male

DRUGS (1)
  1. METGLUCO [Suspect]
     Indication: DIABETES MELLITUS
     Route: 048

REACTIONS (2)
  - Colon cancer [Unknown]
  - Gastrointestinal disorder [Recovered/Resolved]
